FAERS Safety Report 12520871 (Version 1)
Quarter: 2016Q2

REPORT INFORMATION
  Report Type: Spontaneous
  Country: US (occurrence: None)
  Receive Date: 20160630
  Receipt Date: 20160630
  Transmission Date: 20160815
  Serious: No
  Sender: FDA-Public Use
  Company Number: None

PATIENT
  Sex: Female

DRUGS (1)
  1. HUMIRA [Suspect]
     Active Substance: ADALIMUMAB
     Indication: RHEUMATOID ARTHRITIS
     Route: 058
     Dates: start: 20150115, end: 20160620

REACTIONS (5)
  - Hepatic failure [None]
  - Heart rate decreased [None]
  - Renal failure [None]
  - Ulcer haemorrhage [None]
  - Myocardial infarction [None]
